FAERS Safety Report 9569290 (Version 1)
Quarter: 2013Q3

REPORT INFORMATION
  Report Type: Spontaneous
  Country: US (occurrence: US)
  Receive Date: 20130930
  Receipt Date: 20130930
  Transmission Date: 20140515
  Serious: No
  Sender: FDA-Public Use
  Company Number: US-AMGEN-USASP2013058837

PATIENT
  Age: 63 Year
  Sex: Female

DRUGS (11)
  1. GAVISCON CHEWABLE [Concomitant]
     Dosage: UNK
  2. VITAMIN D3 [Concomitant]
     Dosage: 1000 UNIT, UNK
  3. MSM [Concomitant]
     Dosage: 500 MG, UNK
  4. FISH OIL [Concomitant]
     Dosage: UNK
  5. OMEGA 3                            /01333901/ [Concomitant]
     Dosage: 340 MG, UNK
  6. MULTIVITAMINS, PLAIN [Concomitant]
     Dosage: UNK
  7. CLOPIDOGREL [Concomitant]
     Dosage: 300 MG, UNK
  8. ENBREL [Suspect]
     Indication: PRODUCT USED FOR UNKNOWN INDICATION
     Dosage: 25 MG, 2 TIMES/WK
     Route: 058
  9. RESTASIS [Concomitant]
     Dosage: 0.05 %, UNK
  10. PREDNISONE [Concomitant]
     Dosage: 1 MG, UNK
  11. TRAVATAN Z [Concomitant]
     Dosage: 0.004 %, UNK

REACTIONS (2)
  - Flatulence [Unknown]
  - Cough [Unknown]
